FAERS Safety Report 5037168-2 (Version None)
Quarter: 2006Q2

REPORT INFORMATION
  Report Type: 
  Country: None (occurrence: None)
  Receive Date: 20060628
  Receipt Date: 20060421
  Transmission Date: 20061013
  Serious: Yes (Other)
  Sender: FDA-Public Use
  Company Number: 2006UW07405

PATIENT
  Sex: Female
  Weight: 56.8 kg

DRUGS (6)
  1. CRESTOR [Suspect]
     Indication: BLOOD CHOLESTEROL
     Route: 048
     Dates: start: 20031120
  2. LOSEC [Concomitant]
     Indication: HERNIA
     Route: 048
     Dates: start: 20000101
  3. GLYBURIDE [Concomitant]
     Indication: DIABETES MELLITUS
     Dates: start: 20050401
  4. NIIHYDRO [Concomitant]
     Indication: BLOOD PRESSURE
     Dates: start: 20000101
  5. ALTACE [Concomitant]
     Indication: BLOOD PRESSURE
     Route: 048
     Dates: start: 20000101
  6. AMITRIPTYLINE HCL [Concomitant]
     Dates: start: 20030101

REACTIONS (1)
  - ATRIOVENTRICULAR BLOCK [None]
